FAERS Safety Report 6131545-4 (Version None)
Quarter: 2009Q1

REPORT INFORMATION
  Report Type: 
  Country: None (occurrence: None)
  Receive Date: 20090325
  Receipt Date: 20080929
  Transmission Date: 20090719
  Serious: No
  Sender: FDA-Public Use
  Company Number: US-BRISTOL-MYERS SQUIBB COMPANY-14352694

PATIENT
  Age: 40 Year
  Sex: Male

DRUGS (1)
  1. ERBITUX [Suspect]
     Dosage: INITIALLY 250MG IV WEEKLY LATER ON TO EVERY OTHER WEEK WITH INCREASED DOSING OF 500MG IV
     Route: 042

REACTIONS (1)
  - RASH [None]
